FAERS Safety Report 17841834 (Version 1)
Quarter: 2020Q2

REPORT INFORMATION
  Report Type: Spontaneous
  Country: GB (occurrence: GB)
  Receive Date: 20200529
  Receipt Date: 20200529
  Transmission Date: 20200714
  Serious: Yes (Hospitalization)
  Sender: FDA-Public Use
  Company Number: NVSC2020GB066289

PATIENT
  Age: 66 Year
  Sex: Female

DRUGS (13)
  1. OLANZAPINE. [Suspect]
     Active Substance: OLANZAPINE
     Dosage: UNK, RAPID TITRATION TO 20MG
     Route: 030
  2. NIVOLUMAB [Suspect]
     Active Substance: NIVOLUMAB
     Dosage: UNK, TWO-WEEKLY
     Route: 065
  3. DIAZEPAM. [Suspect]
     Active Substance: DIAZEPAM
     Indication: MANIA
     Dosage: UNK
     Route: 065
  4. OLANZAPINE. [Suspect]
     Active Substance: OLANZAPINE
     Indication: MANIA
     Dosage: RAPID TITRATION TO 20MG
     Route: 048
  5. CLONAZEPAM. [Suspect]
     Active Substance: CLONAZEPAM
     Indication: MANIA
     Dosage: UNK
     Route: 065
  6. NIVOLUMAB [Suspect]
     Active Substance: NIVOLUMAB
     Indication: SMALL CELL LUNG CANCER METASTATIC
     Dosage: IN COMBINATION WITH IPILIMUMAB
     Route: 065
     Dates: start: 2017, end: 2017
  7. OMEPRAZOLE. [Concomitant]
     Active Substance: OMEPRAZOLE
     Indication: PRODUCT USED FOR UNKNOWN INDICATION
     Dosage: 40 MILLIGRAM DAILY;
     Route: 065
  8. DEXAMETHASONE. [Suspect]
     Active Substance: DEXAMETHASONE
     Indication: METASTASES TO CENTRAL NERVOUS SYSTEM
     Dosage: UNK, HOGH DOSE
     Route: 065
  9. IPILIMUMAB [Suspect]
     Active Substance: IPILIMUMAB
     Indication: SMALL CELL LUNG CANCER METASTATIC
     Dosage: IN COMBINATION WITH NIVOLUMAB
     Route: 065
     Dates: start: 2017, end: 2017
  10. LORAZEPAM. [Suspect]
     Active Substance: LORAZEPAM
     Indication: MANIA
     Dosage: UNK
     Route: 065
  11. DOCUSATE [Concomitant]
     Active Substance: DOCUSATE
     Indication: PRODUCT USED FOR UNKNOWN INDICATION
     Route: 065
  12. DALTEPARIN [Concomitant]
     Active Substance: DALTEPARIN
     Indication: PULMONARY EMBOLISM
     Dosage: UNK
     Route: 065
     Dates: start: 201712
  13. DEXAMETHASONE. [Suspect]
     Active Substance: DEXAMETHASONE
     Indication: SMALL CELL LUNG CANCER METASTATIC

REACTIONS (6)
  - Insomnia [Unknown]
  - Mania [Recovering/Resolving]
  - Toxic leukoencephalopathy [Recovering/Resolving]
  - Drug ineffective [Unknown]
  - Immune-mediated encephalitis [Recovering/Resolving]
  - Rash [Unknown]

NARRATIVE: CASE EVENT DATE: 2017
